FAERS Safety Report 5063763-0 (Version None)
Quarter: 2006Q3

REPORT INFORMATION
  Report Type: 
  Country: None (occurrence: None)
  Receive Date: 20060703
  Receipt Date: 20051107
  Transmission Date: 20061208
  Serious: No
  Sender: FDA-Public Use
  Company Number: 2005S1011064

PATIENT
  Age: 57 Year
  Sex: Male

DRUGS (9)
  1. CLOZAPINE [Suspect]
     Indication: SCHIZOPHRENIA, PARANOID TYPE
     Dosage: 250 MG; HS; ORAL
     Route: 048
     Dates: start: 20050804
  2. THIAMINE [Concomitant]
  3. VITAMINS [Concomitant]
  4. FOLATE SODIUM [Concomitant]
  5. LORAZEPAM [Concomitant]
  6. OXCARBAZEPINE [Concomitant]
  7. DOCUSATE SODIUM [Concomitant]
  8. SODIUM CITRATE/MENTHOL/DIPHENHYDRAMINE HYDROCHLORIDE/ AMMONIUM CHLORID [Concomitant]
  9. HYDROCHLORIDE/ AMMONIUM CHLORIDE [Concomitant]

REACTIONS (1)
  - GRANULOCYTOPENIA [None]
